FAERS Safety Report 25873202 (Version 4)
Quarter: 2025Q4

REPORT INFORMATION
  Report Type: Spontaneous
  Country: CA (occurrence: CA)
  Receive Date: 20251002
  Receipt Date: 20251205
  Transmission Date: 20260118
  Serious: Yes (Hospitalization, Other)
  Sender: PFIZER
  Company Number: CA-PFIZER INC-202500194741

PATIENT
  Age: 72 Year
  Sex: Male
  Weight: 74.9 kg

DRUGS (5)
  1. IXIFI [Suspect]
     Active Substance: INFLIXIMAB-QBTX
     Indication: Crohn^s disease
     Dosage: 800 MG, EVERY 8 WEEKS
     Route: 042
  2. IXIFI [Suspect]
     Active Substance: INFLIXIMAB-QBTX
     Dosage: 800 MG, EVERY 8 WEEKS
     Route: 042
     Dates: start: 20250805
  3. IXIFI [Suspect]
     Active Substance: INFLIXIMAB-QBTX
     Dosage: 800 MG, EVERY 8 WEEKS
     Route: 042
     Dates: start: 20250805
  4. IXIFI [Suspect]
     Active Substance: INFLIXIMAB-QBTX
     Dosage: 800 MG, EVERY 8 WEEKS
     Route: 042
     Dates: start: 20251002
  5. IXIFI [Suspect]
     Active Substance: INFLIXIMAB-QBTX
     Dosage: 800 MG, EVERY 8 WEEKS
     Route: 042
     Dates: start: 20251127

REACTIONS (3)
  - Intestinal resection [Not Recovered/Not Resolved]
  - Systemic lupus erythematosus [Recovered/Resolved with Sequelae]
  - Condition aggravated [Recovering/Resolving]

NARRATIVE: CASE EVENT DATE: 20250901
